FAERS Safety Report 5908956-2 (Version None)
Quarter: 2008Q4

REPORT INFORMATION
  Report Type: 
  Country: None (occurrence: None)
  Receive Date: 20081001
  Receipt Date: 20080915
  Transmission Date: 20090506
  Serious: Yes (Hospitalization, Other)
  Sender: FDA-Public Use
  Company Number: GXKR2008US08795

PATIENT
  Age: 46 Year
  Sex: Male

DRUGS (1)
  1. PREDNISONE TAB [Suspect]
     Indication: DYSPNOEA
     Dosage: 40 MG, QD

REACTIONS (12)
  - ACUTE CHEST SYNDROME [None]
  - APHASIA [None]
  - ATELECTASIS [None]
  - BONE MARROW DISORDER [None]
  - COGNITIVE DISORDER [None]
  - CONCOMITANT DISEASE AGGRAVATED [None]
  - ELECTROENCEPHALOGRAM ABNORMAL [None]
  - FAT EMBOLISM [None]
  - INFARCTION [None]
  - LEUKOCYTOSIS [None]
  - PAIN [None]
  - RESPIRATORY FAILURE [None]
